FAERS Safety Report 5582544-2 (Version None)
Quarter: 2007Q4

REPORT INFORMATION
  Report Type: 
  Country: None (occurrence: None)
  Receive Date: 20071130
  Receipt Date: 20070312
  Transmission Date: 20080405
  Serious: Yes (Other)
  Sender: FDA-Public Use
  Company Number: WAES 0703USA01960

PATIENT
  Age: 67 Year
  Sex: Female
  Weight: 42.1845 kg

DRUGS (14)
  1. FOSAMAX [Suspect]
     Indication: OSTEOPOROSIS
     Dosage: 10 MG/DAILY/PO
     Route: 048
     Dates: start: 19990701
  2. FOSAMAX [Suspect]
     Indication: OSTEOPOROSIS
     Dosage: 70 MG/WKY/PO
     Route: 048
     Dates: start: 20010105, end: 20060607
  3. FOSAMAX [Suspect]
     Indication: OSTEOPOROSIS
     Dosage: 80 MG/WKY/PO
     Route: 048
     Dates: end: 20010105
  4. EVISTA [Concomitant]
  5. LUMIGAN [Concomitant]
  6. NORVASC [Concomitant]
  7. PANCREASE (PANCREATIN) [Concomitant]
  8. REMICADE [Concomitant]
  9. VOLTAREN [Concomitant]
  10. BRIMONIDINE TARTRATE [Concomitant]
  11. DIPYRONE [Concomitant]
  12. LEFLUNOMIDE [Concomitant]
  13. LISINOPRIL [Concomitant]
  14. PREDNISONE TAB [Concomitant]

REACTIONS (8)
  - BONE DENSITY DECREASED [None]
  - DRUG ADMINISTRATION ERROR [None]
  - OSTEOMYELITIS [None]
  - OSTEONECROSIS [None]
  - SYNOVIAL CYST [None]
  - SYNOVITIS [None]
  - TENOSYNOVITIS [None]
  - WRIST FRACTURE [None]
